FAERS Safety Report 5283303-0 (Version None)
Quarter: 2007Q2

REPORT INFORMATION
  Report Type: 
  Country: None (occurrence: None)
  Receive Date: 20070402
  Receipt Date: 20070326
  Transmission Date: 20071010
  Serious: Yes (Hospitalization)
  Sender: FDA-Public Use
  Company Number: 2007AP01395

PATIENT
  Age: 13491 Day
  Sex: Male
  Weight: 75 kg

DRUGS (5)
  1. SEROQUEL [Suspect]
     Indication: SCHIZOPHRENIA
     Dosage: TWO YEARS DURATION AT PRESENT
     Route: 048
     Dates: start: 20050101
  2. RISPERDAL [Suspect]
     Indication: SCHIZOPHRENIA
     Route: 048
     Dates: start: 20050101
  3. MEILAX [Concomitant]
     Indication: SCHIZOPHRENIA
     Route: 048
  4. LORAMET [Concomitant]
     Indication: SCHIZOPHRENIA
     Route: 048
  5. LIVALO [Concomitant]
     Indication: HYPERCHOLESTEROLAEMIA
     Dates: start: 20070201

REACTIONS (1)
  - DIABETIC KETOACIDOSIS [None]
